FAERS Safety Report 8547922-8 (Version None)
Quarter: 2012Q3

REPORT INFORMATION
  Report Type: 
  Country: None (occurrence: None)
  Receive Date: 20120728
  Receipt Date: 20120718
  Transmission Date: 20120928
  Serious: Yes (Hospitalization, Other)
  Sender: FDA-Public Use
  Company Number: US-009507513-1010USA00665

PATIENT

DRUGS (8)
  1. FOSAMAX [Suspect]
     Dosage: 70 MG, UNK
     Route: 048
     Dates: start: 20080916
  2. FOSAMAX [Suspect]
  3. PREMPRO [Concomitant]
     Indication: HORMONE REPLACEMENT THERAPY
     Dosage: 0.625/2.5
     Route: 048
     Dates: start: 19970305
  4. CALCIUM (UNSPECIFIED) [Concomitant]
     Dosage: 1800 MG, QD
     Route: 048
  5. FOSAMAX [Suspect]
     Indication: OSTEOPOROSIS
     Dosage: 10 MG, QD
     Route: 048
     Dates: start: 19970101, end: 20011019
  6. ADVAIR DISKUS 100/50 [Concomitant]
     Indication: ASTHMA
  7. LEVOXYL [Concomitant]
     Indication: HYPOTHYROIDISM
     Dosage: 0.125-0.137
  8. FOSAMAX [Suspect]
     Indication: STRESS FRACTURE
     Dosage: 70 MG, QW
     Route: 048
     Dates: start: 20011019, end: 20080122

REACTIONS (24)
  - PAIN IN EXTREMITY [None]
  - FEMUR FRACTURE [None]
  - FRACTURE NONUNION [None]
  - RIB FRACTURE [None]
  - RHEUMATOID ARTHRITIS [None]
  - STRESS FRACTURE [None]
  - DYSPEPSIA [None]
  - ARTHRALGIA [None]
  - IMPAIRED HEALING [None]
  - WEIGHT INCREASED [None]
  - NIGHT SWEATS [None]
  - STERNAL FRACTURE [None]
  - ARTHROPOD BITE [None]
  - TREATMENT NONCOMPLIANCE [None]
  - BONE METABOLISM DISORDER [None]
  - ALOPECIA [None]
  - FALL [None]
  - LOW TURNOVER OSTEOPATHY [None]
  - OSTEOPENIA [None]
  - FOOT FRACTURE [None]
  - ROAD TRAFFIC ACCIDENT [None]
  - CYSTITIS [None]
  - EYE INFECTION [None]
  - BLOOD CHOLESTEROL INCREASED [None]
